FAERS Safety Report 9688419 (Version 1)
Quarter: 2013Q4

REPORT INFORMATION
  Report Type: Spontaneous
  Country: DE (occurrence: DE)
  Receive Date: 20131114
  Receipt Date: 20131114
  Transmission Date: 20140711
  Serious: Yes (Hospitalization)
  Sender: FDA-Public Use
  Company Number: DE-ASTRAZENECA-2013SE81536

PATIENT
  Age: 54 Year
  Sex: Male

DRUGS (10)
  1. SEROQUEL PROLONG [Suspect]
     Dosage: TOTAL DAILY DOSE: 800 MG
     Route: 048
  2. METOPROLOL [Suspect]
     Dosage: TOTAL DAILY DOSE: 100 MG
     Route: 048
  3. ERGENYL [Interacting]
     Dosage: TOTAL DAILY DOSE: 600 MG
     Route: 048
     Dates: start: 201202
  4. NORTRILEN [Interacting]
     Route: 048
     Dates: start: 201202, end: 20130628
  5. TAVOR [Suspect]
     Route: 048
     Dates: end: 20130719
  6. SIMVASTATIN [Concomitant]
     Dosage: TOTAL DAILY DOSE: 20 MG
     Route: 048
  7. ASS [Concomitant]
     Dosage: TOTAL DAILY DOSE: 100 MG
     Route: 048
  8. TAMSULOSIN [Concomitant]
     Dosage: TOTAL DAILY DOSE: 0.4 MG
     Route: 048
  9. RAMIPRIL [Concomitant]
     Dosage: TOTAL DAILY DOSE: 10 MG
     Route: 048
  10. PANTOZOL [Concomitant]
     Dosage: TOTAL DAILY DOSE: 40 MG
     Route: 048

REACTIONS (2)
  - Drug interaction [Recovered/Resolved]
  - Encephalopathy [Recovered/Resolved]
